FAERS Safety Report 13676463 (Version 2)
Quarter: 2017Q3

REPORT INFORMATION
  Report Type: Spontaneous
  Country: US (occurrence: US)
  Receive Date: 20170622
  Receipt Date: 20170731
  Transmission Date: 20171127
  Serious: Yes (Hospitalization)
  Sender: FDA-Public Use
  Company Number: PHEH2017US018918

PATIENT
  Age: 84 Year
  Sex: Female
  Weight: 120.4 kg

DRUGS (1)
  1. ENTRESTO [Suspect]
     Active Substance: SACUBITRIL\VALSARTAN
     Indication: CARDIAC FAILURE CONGESTIVE
     Dosage: 50 MG, UNK
     Route: 048
     Dates: start: 20170412, end: 20170606

REACTIONS (5)
  - Acute kidney injury [Recovering/Resolving]
  - Oedema peripheral [Unknown]
  - Crying [Unknown]
  - Anuria [Unknown]
  - Hypotension [Unknown]

NARRATIVE: CASE EVENT DATE: 20170602
